FAERS Safety Report 23442167 (Version 1)
Quarter: 2024Q1

REPORT INFORMATION
  Report Type: Spontaneous
  Country: US (occurrence: US)
  Receive Date: 20240125
  Receipt Date: 20240125
  Transmission Date: 20240410
  Serious: Yes (Death, Life-Threatening, Hospitalization)
  Sender: FDA-Public Use
  Company Number: US-MYLANLABS-2024M1006289

PATIENT
  Age: 57 Year
  Sex: Male

DRUGS (3)
  1. HEPARIN [Suspect]
     Active Substance: HEPARIN SODIUM
     Indication: Thrombosis prophylaxis
     Dosage: UNK
     Route: 058
  2. ARGATROBAN [Suspect]
     Active Substance: ARGATROBAN
     Indication: Heparin-induced thrombocytopenia
     Dosage: UNK
     Route: 065
  3. METHYLPREDNISOLONE [Suspect]
     Active Substance: METHYLPREDNISOLONE
     Indication: Prophylaxis against transplant rejection
     Dosage: 500 MILLIGRAM, ONE DOSE
     Route: 042

REACTIONS (8)
  - Cardiac arrest [Fatal]
  - Heparin-induced thrombocytopenia [Fatal]
  - Drug ineffective [Fatal]
  - Disseminated intravascular coagulation [Unknown]
  - Shock haemorrhagic [Unknown]
  - Hepatic artery thrombosis [Unknown]
  - Liver transplant failure [Unknown]
  - Hepatic infarction [Unknown]
